FAERS Safety Report 21225466 (Version 1)
Quarter: 2022Q3

REPORT INFORMATION
  Report Type: Spontaneous
  Country: TR (occurrence: TR)
  Receive Date: 20220818
  Receipt Date: 20220818
  Transmission Date: 20221027
  Serious: Yes (Other)
  Sender: FDA-Public Use
  Company Number: TR-SUN PHARMACEUTICAL INDUSTRIES LTD-2022R1-349166

PATIENT
  Age: 47 Year
  Sex: Male

DRUGS (1)
  1. AMITRIPTYLINE [Suspect]
     Active Substance: AMITRIPTYLINE
     Indication: Product used for unknown indication
     Dosage: UNK (50 TABLETS OF 25 MG)
     Route: 065

REACTIONS (2)
  - Drug abuse [Unknown]
  - Overdose [Unknown]
